FAERS Safety Report 16305738 (Version 2)
Quarter: 2020Q4

REPORT INFORMATION
  Report Type: Spontaneous
  Country: US (occurrence: US)
  Receive Date: 20190513
  Receipt Date: 20201210
  Transmission Date: 20210113
  Serious: Yes (Hospitalization, Other)
  Sender: FDA-Public Use
  Company Number: US-ASTRAZENECA-2019SE65858

PATIENT
  Age: 22540 Day
  Sex: Female
  Weight: 86.2 kg

DRUGS (73)
  1. TRAZODONE [Concomitant]
     Active Substance: TRAZODONE HYDROCHLORIDE
     Indication: INSOMNIA
     Dates: start: 201006, end: 201607
  2. MILK OF MAGNESIA [Concomitant]
     Active Substance: MAGNESIUM HYDROXIDE
  3. MAALOX ANTACID [Concomitant]
     Active Substance: ALUMINUM HYDROXIDE\DIMETHICONE\MAGNESIUM HYDROXIDE
  4. XANAX [Concomitant]
     Active Substance: ALPRAZOLAM
  5. FLORASTOR [Concomitant]
     Active Substance: SACCHAROMYCES CEREVISIAE
  6. BENZONATATE. [Concomitant]
     Active Substance: BENZONATATE
  7. NEO/ POLY/ HC [Concomitant]
  8. JANTOVEN [Concomitant]
     Active Substance: WARFARIN SODIUM
  9. PRILOSEC [Suspect]
     Active Substance: OMEPRAZOLE MAGNESIUM
     Indication: GASTROOESOPHAGEAL REFLUX DISEASE
     Route: 048
     Dates: start: 20100401, end: 20150715
  10. PROTONIX [Suspect]
     Active Substance: PANTOPRAZOLE SODIUM
     Indication: GASTROOESOPHAGEAL REFLUX DISEASE
     Route: 065
     Dates: start: 20150418, end: 20150518
  11. MECLIZINE [Concomitant]
     Active Substance: MECLIZINE HYDROCHLORIDE
  12. VITAMIN D3 [Concomitant]
     Active Substance: CHOLECALCIFEROL
  13. EPIPEN [Concomitant]
     Active Substance: EPINEPHRINE
  14. CLINDAMYCIN. [Concomitant]
     Active Substance: CLINDAMYCIN
  15. GAVILYTE [Concomitant]
  16. PRAMIPEXOLE. [Concomitant]
     Active Substance: PRAMIPEXOLE
     Indication: PARKINSON^S DISEASE
     Dates: start: 201006, end: 201607
  17. ZOFRAN [Concomitant]
     Active Substance: ONDANSETRON HYDROCHLORIDE
  18. MIRAPEX [Concomitant]
     Active Substance: PRAMIPEXOLE DIHYDROCHLORIDE
  19. MINERAL OIL. [Concomitant]
     Active Substance: MINERAL OIL
  20. AZTREONAM. [Concomitant]
     Active Substance: AZTREONAM
  21. NITROFURAN [Concomitant]
     Active Substance: NITROFURANTOIN
  22. VENLAFAXINE [Concomitant]
     Active Substance: VENLAFAXINE HYDROCHLORIDE
  23. ESTRADIOL. [Concomitant]
     Active Substance: ESTRADIOL
  24. FLINTSTONE [Concomitant]
  25. PRILOSEC OTC [Suspect]
     Active Substance: OMEPRAZOLE MAGNESIUM
     Indication: GASTROOESOPHAGEAL REFLUX DISEASE
     Route: 048
     Dates: start: 20140704, end: 2018
  26. LISINOPRIL. [Concomitant]
     Active Substance: LISINOPRIL
     Indication: HYPERTENSION
     Dates: start: 201006, end: 201607
  27. OXYCODONE-ACETAMINOPHEN [Concomitant]
     Active Substance: ACETAMINOPHEN\OXYCODONE HYDROCHLORIDE
     Indication: ANALGESIC THERAPY
     Dates: start: 2010, end: 2016
  28. PROGESTERONE. [Concomitant]
     Active Substance: PROGESTERONE
  29. DULCOLAX NOS [Concomitant]
     Active Substance: BISACODYL OR DOCUSATE SODIUM
  30. CODEINE [Concomitant]
     Active Substance: CODEINE
  31. SENNA [Concomitant]
     Active Substance: SENNA LEAF\SENNOSIDES\SENNOSIDES A AND B
  32. NICOTINE. [Concomitant]
     Active Substance: NICOTINE
  33. PHENAZOPYRID [Concomitant]
  34. PRILOSEC [Suspect]
     Active Substance: OMEPRAZOLE MAGNESIUM
     Indication: GASTROOESOPHAGEAL REFLUX DISEASE
     Dosage: GENERIC
     Route: 065
     Dates: start: 20140626, end: 20160628
  35. CYANOCOBALAMIN. [Concomitant]
     Active Substance: CYANOCOBALAMIN
     Indication: VITAMIN B12 DEFICIENCY
     Dates: start: 2010, end: 2016
  36. RANITIDINE. [Concomitant]
     Active Substance: RANITIDINE
  37. SODIUM BENZOATE [Concomitant]
     Active Substance: SODIUM BENZOATE
  38. LISINOPRIL HCTZ [Concomitant]
     Active Substance: HYDROCHLOROTHIAZIDE\LISINOPRIL
  39. DOXYCYCLINE HYCLATE. [Concomitant]
     Active Substance: DOXYCYCLINE HYCLATE
  40. HYDROMORPHONE [Concomitant]
     Active Substance: HYDROMORPHONE
     Indication: PAIN
     Dates: start: 201006, end: 201607
  41. ASPIRIN. [Concomitant]
     Active Substance: ASPIRIN
     Indication: ANALGESIC THERAPY
     Dates: start: 2010, end: 2016
  42. IRON [Concomitant]
     Active Substance: IRON
  43. OXYCODONE [Concomitant]
     Active Substance: OXYCODONE
  44. VISTARIL [Concomitant]
     Active Substance: HYDROXYZINE PAMOATE
  45. LEVOFLOX [Concomitant]
     Active Substance: LEVOFLOXACIN
  46. MAGNESIUM OXIDE. [Concomitant]
     Active Substance: MAGNESIUM OXIDE
  47. DIAZEPAM. [Concomitant]
     Active Substance: DIAZEPAM
  48. SMZ/TMP [Concomitant]
     Active Substance: SULFAMETHOXAZOLE\TRIMETHOPRIM
  49. AMLODIPINE [Concomitant]
     Active Substance: AMLODIPINE BESYLATE
     Indication: HYPERTENSION
     Dates: start: 201006, end: 201607
  50. ATORVASTATIN [Concomitant]
     Active Substance: ATORVASTATIN
     Indication: BLOOD CHOLESTEROL INCREASED
     Dates: start: 201006, end: 201607
  51. MULTIVITAMINS [Concomitant]
     Active Substance: VITAMINS
  52. TYLENOL [Concomitant]
     Active Substance: ACETAMINOPHEN
  53. COLACE [Concomitant]
     Active Substance: DOCUSATE SODIUM
  54. SULFA [Concomitant]
     Active Substance: UNSPECIFIED INGREDIENT
  55. TRIMETHOPRIM. [Concomitant]
     Active Substance: TRIMETHOPRIM
  56. CEFTRIAXONE. [Concomitant]
     Active Substance: CEFTRIAXONE
  57. ERTAPENEM. [Concomitant]
     Active Substance: ERTAPENEM SODIUM
  58. BUT/ APAP/ CAF [Concomitant]
  59. HYDROCODONE BITARTRATE AND ACETAMINOPHEN [Concomitant]
     Active Substance: ACETAMINOPHEN\HYDROCODONE BITARTRATE
  60. MEDROL [Concomitant]
     Active Substance: METHYLPREDNISOLONE
  61. PREVACID [Suspect]
     Active Substance: LANSOPRAZOLE
     Indication: GASTROOESOPHAGEAL REFLUX DISEASE
     Route: 065
     Dates: start: 20000130, end: 20090501
  62. TUMS [Concomitant]
     Active Substance: CALCIUM CARBONATE
  63. SOLU-MEDROL [Concomitant]
     Active Substance: METHYLPREDNISOLONE SODIUM SUCCINATE
  64. PREDNISONE. [Concomitant]
     Active Substance: PREDNISONE
  65. DILAUDID [Concomitant]
     Active Substance: HYDROMORPHONE HYDROCHLORIDE
  66. CALCIUM CITRATE [Concomitant]
     Active Substance: CALCIUM CITRATE
  67. VENTOLIN [Concomitant]
     Active Substance: ALBUTEROL SULFATE
  68. CIPRO [Concomitant]
     Active Substance: CIPROFLOXACIN HYDROCHLORIDE
  69. FERROUS SULFATE. [Concomitant]
     Active Substance: FERROUS SULFATE
  70. CYCLOBENZAPRINE. [Concomitant]
     Active Substance: CYCLOBENZAPRINE
  71. CHERATUSSIN [Concomitant]
     Active Substance: AMMONIUM CHLORIDE\DEXTROMETHORPHAN\SODIUM CITRATE
  72. ASMANEX [Concomitant]
     Active Substance: MOMETASONE FUROATE
  73. RITUXIMAB. [Concomitant]
     Active Substance: RITUXIMAB

REACTIONS (9)
  - Acute kidney injury [Not Recovered/Not Resolved]
  - Hyperparathyroidism secondary [Unknown]
  - End stage renal disease [Unknown]
  - Glomerulonephritis [Unknown]
  - Renal tubular necrosis [Unknown]
  - Chronic kidney disease [Not Recovered/Not Resolved]
  - Renal failure [Unknown]
  - Nephrogenic anaemia [Unknown]
  - Tubulointerstitial nephritis [Not Recovered/Not Resolved]

NARRATIVE: CASE EVENT DATE: 20150512
